FAERS Safety Report 22987546 (Version 3)
Quarter: 2023Q4

REPORT INFORMATION
  Report Type: Spontaneous
  Country: PL (occurrence: PL)
  Receive Date: 20230926
  Receipt Date: 20231102
  Transmission Date: 20240109
  Serious: Yes (Death, Hospitalization, Other)
  Sender: FDA-Public Use
  Company Number: PL202308003745

PATIENT
  Age: 70 Year
  Sex: Female
  Weight: 77 kg

DRUGS (12)
  1. BENDAMUSTINE HYDROCHLORIDE [Suspect]
     Active Substance: BENDAMUSTINE HYDROCHLORIDE
     Indication: Chronic lymphocytic leukaemia
     Dosage: 90 MG/M2, CYCLE 1 BR THERAPY
     Route: 042
     Dates: start: 20221130
  2. BENDAMUSTINE HYDROCHLORIDE [Suspect]
     Active Substance: BENDAMUSTINE HYDROCHLORIDE
     Dosage: 90 MG/M2, CYCLE 2 BR THERAPY
     Route: 042
  3. BENDAMUSTINE HYDROCHLORIDE [Suspect]
     Active Substance: BENDAMUSTINE HYDROCHLORIDE
     Dosage: 90 MG/M2, CYCLE 3 BR THERAPY
     Route: 042
  4. BENDAMUSTINE HYDROCHLORIDE [Suspect]
     Active Substance: BENDAMUSTINE HYDROCHLORIDE
     Dosage: 90 MG/M2, CYCLE 4 BR THERAPY
     Route: 042
  5. BENDAMUSTINE HYDROCHLORIDE [Suspect]
     Active Substance: BENDAMUSTINE HYDROCHLORIDE
     Dosage: 90 MG/M2, CYCLE 5 BR THERAPY
     Route: 042
  6. BENDAMUSTINE HYDROCHLORIDE [Suspect]
     Active Substance: BENDAMUSTINE HYDROCHLORIDE
     Dosage: 90 MG/M2, CYCLE 6 BR THERAPY
     Route: 042
     Dates: end: 20230727
  7. RITUXIMAB [Suspect]
     Active Substance: RITUXIMAB
     Indication: Chronic lymphocytic leukaemia
     Dosage: 375 MG/M2, CYCLE 1 BR THERAPY
     Route: 042
     Dates: start: 20221130
  8. RITUXIMAB [Suspect]
     Active Substance: RITUXIMAB
     Dosage: 375 MG/M2, CYCLE 2 BR THERAPY
     Route: 042
  9. RITUXIMAB [Suspect]
     Active Substance: RITUXIMAB
     Dosage: 375 MG/M2, CYCLE 3 BR THERAPY
     Route: 042
  10. RITUXIMAB [Suspect]
     Active Substance: RITUXIMAB
     Dosage: 375 MG/M2, CYCLE 4 BR THERAPY
     Route: 042
  11. RITUXIMAB [Suspect]
     Active Substance: RITUXIMAB
     Dosage: 375 MG/M2, CYCLE 5 BR THERAPY
     Route: 042
  12. RITUXIMAB [Suspect]
     Active Substance: RITUXIMAB
     Dosage: 375 MG/M2, CYCLE 6 BR THERAPY
     Route: 042
     Dates: end: 20230727

REACTIONS (6)
  - Cardiac arrest [Fatal]
  - Pneumonia [Fatal]
  - Anaemia [Not Recovered/Not Resolved]
  - Atrial fibrillation [Unknown]
  - Aspergillus infection [Unknown]
  - Neutropenia [Unknown]

NARRATIVE: CASE EVENT DATE: 20230101
